FAERS Safety Report 24442416 (Version 1)
Quarter: 2024Q4

REPORT INFORMATION
  Report Type: Spontaneous
  Country: JP (occurrence: JP)
  Receive Date: 20241016
  Receipt Date: 20241016
  Transmission Date: 20250115
  Serious: Yes (Death, Hospitalization, Congenital Anomaly, Other)
  Sender: AZURITY PHARMACEUTICALS
  Company Number: JP-AZURITY PHARMACEUTICALS, INC.-AZR202410-000834

PATIENT
  Sex: Female

DRUGS (2)
  1. MYCOPHENOLATE MOFETIL [Suspect]
     Active Substance: MYCOPHENOLATE MOFETIL
     Indication: Nephrotic syndrome
     Dosage: UNK
     Route: 064
  2. TELMISARTAN [Suspect]
     Active Substance: TELMISARTAN
     Indication: Nephrotic syndrome
     Dosage: UNK
     Route: 064

REACTIONS (20)
  - Hepatic function abnormal [Fatal]
  - Neonatal gastrointestinal haemorrhage [Fatal]
  - Congenital genitourinary abnormality [Unknown]
  - Intraventricular haemorrhage neonatal [Unknown]
  - Congenital musculoskeletal disorder [Unknown]
  - Neonatal respiratory distress [Unknown]
  - Low birth weight baby [Unknown]
  - Patent ductus arteriosus [Unknown]
  - Shoulder deformity [Unknown]
  - Tracheo-oesophageal fistula [Unknown]
  - Microphthalmos [Unknown]
  - Low set ears [Unknown]
  - Neck deformity [Unknown]
  - Pulmonary malformation [Unknown]
  - Oesophageal atresia [Unknown]
  - Congenital central nervous system anomaly [Unknown]
  - Renal fusion anomaly [Unknown]
  - Micrognathia [Unknown]
  - Cleft palate [Unknown]
  - Foetal exposure during pregnancy [Unknown]
